FAERS Safety Report 4745665-X (Version None)
Quarter: 2005Q3

REPORT INFORMATION
  Report Type: 
  Country: None (occurrence: None)
  Receive Date: 20050811
  Receipt Date: 20050802
  Transmission Date: 20060218
  Serious: Yes (Hospitalization)
  Sender: FDA-Public Use
  Company Number: 2005110305

PATIENT
  Age: 12 Year
  Sex: Female

DRUGS (9)
  1. LYRICA [Suspect]
     Indication: EPILEPSY
     Dosage: 50 MG (50 MG, 1 IN 1 D), ORAL
     Route: 048
     Dates: start: 20050307, end: 20050601
  2. PHENYTOIN [Suspect]
     Indication: EPILEPSY
     Dosage: 87.5 MG (2 IN 1 D), ORAL
     Route: 048
  3. OSPOLOT (SULTIAME) [Concomitant]
  4. FRISIUM (CLOBAZAM) [Concomitant]
  5. MELATONIN (MELATONIN) [Concomitant]
  6. FLUTIDE (FLUTICASONE PROPIONATE) [Concomitant]
  7. LAMICTAL [Concomitant]
  8. LOSEC (OMEPRAZOLE) [Concomitant]
  9. ZYRTEC [Concomitant]

REACTIONS (8)
  - ANTICONVULSANT DRUG LEVEL DECREASED [None]
  - CONDITION AGGRAVATED [None]
  - DRUG INTERACTION [None]
  - DRUG LEVEL DECREASED [None]
  - EPILEPSY [None]
  - OBSTRUCTION [None]
  - PNEUMONIA [None]
  - PNEUMONIA ASPIRATION [None]
